FAERS Safety Report 10376113 (Version 1)
Quarter: 2014Q1

REPORT INFORMATION
  Report Type: Spontaneous
  Country: US (occurrence: None)
  Receive Date: 20140306
  Receipt Date: 20140306
  Transmission Date: 20141002
  Serious: Yes (Other)
  Sender: FDA-Public Use
  Company Number: 163-21880-13034869

PATIENT
  Age: 83 Year
  Sex: Female
  Weight: 58.97 kg

DRUGS (4)
  1. REVLIMID (LENALIDOMIDE) ( 5 MILLIGRAM, CAPSULES) [Suspect]
     Indication: PLASMA CELL MYELOMA
     Route: 048
     Dates: start: 20130309, end: 20130315
  2. VELCADE (BORTEZOMIB) [Concomitant]
  3. DECADRON (DEXAMETHASONE) [Concomitant]
  4. HYOSCYAMINE [Concomitant]

REACTIONS (2)
  - Weight decreased [None]
  - Diarrhoea [None]
